FAERS Safety Report 23360053 (Version 3)
Quarter: 2024Q2

REPORT INFORMATION
  Report Type: Spontaneous
  Country: US (occurrence: US)
  Receive Date: 20240103
  Receipt Date: 20240605
  Transmission Date: 20240715
  Serious: No
  Sender: FDA-Public Use
  Company Number: US-GSKCCFUS-Case-01893103_AE-105619

PATIENT
  Sex: Male

DRUGS (1)
  1. VALTREX [Suspect]
     Active Substance: VALACYCLOVIR HYDROCHLORIDE
     Indication: Product used for unknown indication
     Dosage: UNK

REACTIONS (5)
  - Lip swelling [Unknown]
  - Product taste abnormal [Unknown]
  - Product dose omission issue [Unknown]
  - Product use issue [Unknown]
  - Product complaint [Unknown]

NARRATIVE: CASE EVENT DATE: 20231224
